FAERS Safety Report 23795293 (Version 1)
Quarter: 2024Q2

REPORT INFORMATION
  Report Type: Spontaneous
  Country: QA (occurrence: QA)
  Receive Date: 20240429
  Receipt Date: 20240429
  Transmission Date: 20240716
  Serious: Yes (Death)
  Sender: FDA-Public Use
  Company Number: QA-ABBVIE-5734949

PATIENT
  Age: 42 Year
  Sex: Male

DRUGS (1)
  1. EPCORITAMAB [Suspect]
     Active Substance: EPCORITAMAB
     Indication: Diffuse large B-cell lymphoma stage III
     Route: 058
     Dates: start: 202403

REACTIONS (1)
  - Diffuse large B-cell lymphoma stage III [Fatal]

NARRATIVE: CASE EVENT DATE: 20240401
